FAERS Safety Report 4898847-0 (Version None)
Quarter: 2006Q1

REPORT INFORMATION
  Report Type: 
  Country: None (occurrence: None)
  Receive Date: 20060202
  Receipt Date: 20060127
  Transmission Date: 20060701
  Serious: Yes (Congenital Anomaly)
  Sender: FDA-Public Use
  Company Number: JP-JPN-A200600413

PATIENT

DRUGS (9)
  1. PAXIL [Suspect]
     Dosage: 10MG PER DAY
     Dates: end: 20040327
  2. AMOBAN [Suspect]
     Dosage: 7.5MG PER DAY
     Dates: end: 20040410
  3. MAGNESIUM OXIDE [Suspect]
     Dates: end: 20041201
  4. EURODIN [Concomitant]
     Dates: end: 20031227
  5. KOLANTYL [Concomitant]
     Dosage: 3G THREE TIMES PER DAY
     Dates: end: 20031227
  6. MEILAX [Concomitant]
     Dates: end: 20030131
  7. HORIZON [Concomitant]
     Dates: end: 20030131
  8. SILECE [Concomitant]
     Dates: end: 20031227
  9. BENZALIN [Concomitant]
     Dates: end: 20031227

REACTIONS (3)
  - DRUG EXPOSURE DURING PREGNANCY [None]
  - FINGER HYPOPLASIA [None]
  - NAIL DISORDER [None]
